FAERS Safety Report 7026727-3 (Version None)
Quarter: 2010Q4

REPORT INFORMATION
  Report Type: 
  Country: None (occurrence: None)
  Receive Date: 20101004
  Receipt Date: 20100928
  Transmission Date: 20110411
  Serious: Yes (Hospitalization)
  Sender: FDA-Public Use
  Company Number: GB-ROCHE-633035

PATIENT
  Age: 33 Year
  Sex: Female

DRUGS (1)
  1. CEFTRIAXONE SODIUM [Suspect]
     Indication: LYME DISEASE
     Dosage: DURATION 19 DAY.
     Route: 051
     Dates: start: 20090126, end: 20090213

REACTIONS (5)
  - AGRANULOCYTOSIS [None]
  - NEURODERMATITIS [None]
  - OROPHARYNGEAL PAIN [None]
  - PHARYNGEAL ERYTHEMA [None]
  - TACHYCARDIA [None]
